FAERS Safety Report 21722797 (Version 1)
Quarter: 2022Q4

REPORT INFORMATION
  Report Type: Spontaneous
  Country: US (occurrence: None)
  Receive Date: 20221212
  Receipt Date: 20221212
  Transmission Date: 20230112
  Serious: Yes (Death)
  Sender: FDA-Public Use
  Company Number: None

PATIENT
  Age: 54 Year
  Sex: Male

DRUGS (17)
  1. EMGALITY [Suspect]
     Active Substance: GALCANEZUMAB-GNLM
     Indication: Migraine
     Dates: start: 20221103
  2. BIKTARVY [Suspect]
     Active Substance: BICTEGRAVIR SODIUM\EMTRICITABINE\TENOFOVIR ALAFENAMIDE FUMARATE
     Dates: start: 20210221
  3. ALPRAZOLAM [Concomitant]
     Active Substance: ALPRAZOLAM
     Dates: start: 20200310
  4. AMIODARONE [Concomitant]
     Active Substance: AMIODARONE
     Dates: start: 20211026
  5. ATORVASTATIN [Concomitant]
     Active Substance: ATORVASTATIN
     Dates: start: 20210611
  6. CLOPIDOGREL [Concomitant]
     Active Substance: CLOPIDOGREL BISULFATE
     Dates: start: 20210611
  7. DULOXETINE [Concomitant]
     Active Substance: DULOXETINE
     Dates: start: 20210630
  8. Hydrocodone 15mg ER cap [Concomitant]
     Dates: start: 20210908
  9. ACETAMINOPHEN\HYDROCODONE BITARTRATE [Concomitant]
     Active Substance: ACETAMINOPHEN\HYDROCODONE BITARTRATE
     Dates: start: 20210505
  10. metoprolol er 25mg [Concomitant]
     Dates: start: 20210223
  11. Nurtec 75mg odt [Concomitant]
     Dates: start: 20211111
  12. PREGABALIN [Concomitant]
     Active Substance: PREGABALIN
     Dates: start: 20210909
  13. QUETIAPINE [Concomitant]
     Active Substance: QUETIAPINE
     Dates: start: 20210215
  14. SUMATRIPTAN [Concomitant]
     Active Substance: SUMATRIPTAN
     Dates: start: 20210303
  15. TOPIRAMATE [Concomitant]
     Active Substance: TOPIRAMATE
     Dates: start: 20210505
  16. TRAZODONE [Concomitant]
     Active Substance: TRAZODONE HYDROCHLORIDE
     Dates: start: 20210303
  17. ZOLPIDEM [Concomitant]
     Active Substance: ZOLPIDEM TARTRATE
     Dates: start: 20200904

REACTIONS (1)
  - Death [None]

NARRATIVE: CASE EVENT DATE: 20221211
